FAERS Safety Report 20381674 (Version 1)
Quarter: 2022Q1

REPORT INFORMATION
  Report Type: Spontaneous
  Country: US (occurrence: None)
  Receive Date: 20220126
  Receipt Date: 20220126
  Transmission Date: 20220423
  Serious: Yes (Hospitalization)
  Sender: FDA-Public Use
  Company Number: None

PATIENT
  Age: 67 Year
  Sex: Male

DRUGS (3)
  1. ACTEMRA [Suspect]
     Active Substance: TOCILIZUMAB
     Dosage: OTHER QUANTITY : 162MG/0.9ML;?
     Route: 058
  2. CRESTOR TAB [Concomitant]
  3. MULTIVITAMIN TAB ADULTS [Concomitant]

REACTIONS (1)
  - Left ventricular failure [None]

NARRATIVE: CASE EVENT DATE: 20211231
